FAERS Safety Report 18907736 (Version 2)
Quarter: 2021Q1

REPORT INFORMATION
  Report Type: Spontaneous
  Country: JP (occurrence: JP)
  Receive Date: 20210217
  Receipt Date: 20210224
  Transmission Date: 20210420
  Serious: Yes (Hospitalization)
  Sender: FDA-Public Use
  Company Number: JP-AMGEN-JPNSP2021012406

PATIENT
  Age: 80 Year
  Sex: Female
  Weight: 72 kg

DRUGS (13)
  1. RENIVACE [Concomitant]
     Active Substance: ENALAPRIL
     Dosage: 5 MG, QD
     Route: 048
  2. EBRANTIL [URAPIDIL] [Concomitant]
     Active Substance: URAPIDIL
     Dosage: 30 MG, QD
     Route: 048
  3. TRAZENTA [Concomitant]
     Active Substance: LINAGLIPTIN
     Dosage: 5 MG, QD
     Route: 048
  4. EDIROL [Concomitant]
     Active Substance: ELDECALCITOL
     Dosage: 0.75 UG, QD
     Route: 048
  5. CALCIUM L?ASPARTATE [Concomitant]
     Dosage: 400 MG, TID
     Route: 048
  6. PRALIA [Suspect]
     Active Substance: DENOSUMAB
     Indication: OSTEOPOROSIS
     Dosage: 60 MILLIGRAM, Q6MO
     Route: 058
     Dates: start: 201905, end: 20201126
  7. NIFEDIPINE. [Concomitant]
     Active Substance: NIFEDIPINE
     Dosage: 20 MG, BID
     Route: 048
  8. SODIUM PICOSULFATE [Concomitant]
     Active Substance: SODIUM PICOSULFATE
     Dosage: UNK
     Route: 048
  9. CARDENALIN [Concomitant]
     Active Substance: DOXAZOSIN MESYLATE
     Dosage: 2 MG, QD
     Route: 048
  10. FLUITRAN [Concomitant]
     Active Substance: TRICHLORMETHIAZIDE
     Dosage: 2 MG, QD
     Route: 048
  11. ARGAMATE [Concomitant]
     Active Substance: CALCIUM POLYSTYRENE SULFONATE
     Dosage: UNK
     Route: 065
  12. TRAMCET [Concomitant]
     Active Substance: ACETAMINOPHEN\TRAMADOL
     Dosage: UNK, QID
     Route: 048
  13. MEXITIL [Concomitant]
     Active Substance: MEXILETINE HYDROCHLORIDE
     Dosage: 100 MG, TID
     Route: 048

REACTIONS (1)
  - Platelet count decreased [Unknown]
